FAERS Safety Report 17418113 (Version 7)
Quarter: 2020Q2

REPORT INFORMATION
  Report Type: Spontaneous
  Country: DE (occurrence: DE)
  Receive Date: 20200214
  Receipt Date: 20200605
  Transmission Date: 20200713
  Serious: Yes (Other)
  Sender: FDA-Public Use
  Company Number: DE-AUROBINDO-AUR-APL-2020-007406

PATIENT
  Age: 72 Year
  Sex: Female
  Weight: 66.5 kg

DRUGS (5)
  1. LETROZOLE. [Suspect]
     Active Substance: LETROZOLE
     Indication: BREAST CANCER METASTATIC
     Dosage: 2.5 MILLIGRAM, ONCE A DAY(DAILY DOSE)
     Route: 048
     Dates: start: 20200108
  2. KISQALI [Suspect]
     Active Substance: RIBOCICLIB
     Dosage: 600 MILLIGRAM,(SCHEMA 21 DAYS INTAKE, 7 DAYS PAUSE)
     Route: 048
     Dates: start: 20200204
  3. KISQALI [Suspect]
     Active Substance: RIBOCICLIB
     Dosage: 600 MILLIGRAM,(SCHEMA 21 DAYS INTAKE, 7 DAYS PAUSE)
     Route: 048
     Dates: start: 20200110, end: 20200122
  4. LETROZOLE. [Suspect]
     Active Substance: LETROZOLE
     Dosage: 2.5 MILLIGRAM, ONCE A DAY(DAILY DOSE)
     Route: 048
     Dates: start: 20200110
  5. KISQALI [Suspect]
     Active Substance: RIBOCICLIB
     Indication: BREAST CANCER METASTATIC
     Dosage: 600 MILLIGRAM, ONCE A DAY  (SCHEMA 21 DAYS INTAKE, 7 DAYS PAUSE)
     Route: 048
     Dates: start: 20200108

REACTIONS (17)
  - Blood lactate dehydrogenase increased [Not Recovered/Not Resolved]
  - Alanine aminotransferase increased [Recovered/Resolved]
  - Electrocardiogram QT prolonged [Recovered/Resolved]
  - Brain oedema [Recovering/Resolving]
  - Thrombocytopenia [Recovered/Resolved]
  - Mucosal inflammation [Recovering/Resolving]
  - Leukopenia [Recovered/Resolved]
  - Protein urine present [Unknown]
  - Dysuria [Recovered/Resolved]
  - Dizziness [Unknown]
  - Blood creatinine increased [Recovered/Resolved]
  - Oedema peripheral [Recovering/Resolving]
  - Gamma-glutamyltransferase increased [Not Recovered/Not Resolved]
  - Blood urine present [Unknown]
  - Weight decreased [Recovering/Resolving]
  - Anaemia [Not Recovered/Not Resolved]
  - Myopathy [Not Recovered/Not Resolved]

NARRATIVE: CASE EVENT DATE: 20200122
